FAERS Safety Report 15781038 (Version 1)
Quarter: 2019Q1

REPORT INFORMATION
  Report Type: Spontaneous
  Country: NL (occurrence: NL)
  Receive Date: 20190102
  Receipt Date: 20190102
  Transmission Date: 20190417
  Serious: Yes (Other)
  Sender: FDA-Public Use
  Company Number: NL-ALKEM LABORATORIES LIMITED-NL-ALKEM-2018-03751

PATIENT

DRUGS (2)
  1. MYCOPHENOLATE MOFETIL. [Suspect]
     Active Substance: MYCOPHENOLATE MOFETIL
     Indication: DISEASE RECURRENCE
  2. MYCOPHENOLATE MOFETIL. [Suspect]
     Active Substance: MYCOPHENOLATE MOFETIL
     Indication: NEPHROTIC SYNDROME
     Dosage: 1200 MG/M2, BID, (MAXIMUM DOSE 1 G TWICE DAILY)
     Route: 065

REACTIONS (4)
  - Drug ineffective [Unknown]
  - Eczema [Unknown]
  - Decreased appetite [Unknown]
  - Treatment noncompliance [Unknown]
